FAERS Safety Report 8346461-7 (Version None)
Quarter: 2012Q2

REPORT INFORMATION
  Report Type: 
  Country: None (occurrence: None)
  Receive Date: 20120509
  Receipt Date: 20120507
  Transmission Date: 20120825
  Serious: Yes (Hospitalization)
  Sender: FDA-Public Use
  Company Number: DE-PFIZER INC-2012111560

PATIENT
  Age: 36 Year
  Sex: Female
  Weight: 58 kg

DRUGS (4)
  1. BETAMETHASONE [Concomitant]
     Indication: MATERNAL THERAPY TO ENHANCE FOETAL LUNG MATURITY
     Dosage: 12 MG, DAILY
     Route: 030
     Dates: start: 20110930, end: 20110930
  2. SERTRALINE HYDROCHLORIDE [Suspect]
     Dosage: 150 MG, DAILY
     Route: 048
     Dates: end: 20110930
  3. SERTRALINE HYDROCHLORIDE [Suspect]
     Indication: DEPRESSION
     Dosage: 100 MG, DAILY
     Route: 048
     Dates: start: 20110331, end: 20110816
  4. FOLACID [Concomitant]
     Indication: PROPHYLAXIS OF NEURAL TUBE DEFECT
     Dosage: PRECON
     Route: 048
     Dates: start: 20110331, end: 20110930

REACTIONS (2)
  - PREMATURE LABOUR [None]
  - CAESAREAN SECTION [None]
